FAERS Safety Report 9804997 (Version 2)
Quarter: 2015Q3

REPORT INFORMATION
  Report Type: Report from Study
  Country: US (occurrence: US)
  Receive Date: 20140109
  Receipt Date: 20150721
  Transmission Date: 20151125
  Serious: Yes (Hospitalization, Other)
  Sender: FDA-Public Use
  Company Number: US-ROCHE-1328775

PATIENT
  Age: 51 Year
  Sex: Male

DRUGS (7)
  1. PROPRANOLOL [Concomitant]
     Active Substance: PROPRANOLOL\PROPRANOLOL HYDROCHLORIDE
     Indication: BLOOD PRESSURE MEASUREMENT
     Route: 048
  2. GABAPENTIN. [Concomitant]
     Active Substance: GABAPENTIN
  3. COPEGUS [Suspect]
     Active Substance: RIBAVIRIN
     Indication: HEPATITIS C
     Dosage: 5 REFILLS (600 MG IN MORNING AND 600 MG IN EVENING)
     Route: 048
     Dates: start: 20130906, end: 20131212
  4. INCIVEK [Suspect]
     Active Substance: TELAPREVIR
     Indication: HEPATITIS C
     Route: 048
     Dates: start: 20130906, end: 20131206
  5. PEGASYS [Suspect]
     Active Substance: PEGINTERFERON ALFA-2A
     Indication: CHRONIC HEPATITIS C
     Dosage: 180 MCG/0.5 ML?5 REFILLS
     Route: 058
     Dates: start: 20130906, end: 20131210
  6. IBUPROFEN. [Concomitant]
     Active Substance: IBUPROFEN
  7. NADOLOL. [Concomitant]
     Active Substance: NADOLOL

REACTIONS (11)
  - Peripheral swelling [Recovering/Resolving]
  - Insomnia [Recovered/Resolved]
  - Rash generalised [Recovering/Resolving]
  - Ear deformity acquired [Recovering/Resolving]
  - Genital swelling [Recovering/Resolving]
  - Asthenia [Recovering/Resolving]
  - Body temperature increased [Recovered/Resolved]
  - Otorrhoea [Recovered/Resolved]
  - Chills [Unknown]
  - Nausea [Recovering/Resolving]
  - Alopecia [Unknown]

NARRATIVE: CASE EVENT DATE: 201311
